FAERS Safety Report 23440240 (Version 2)
Quarter: 2024Q1

REPORT INFORMATION
  Report Type: Spontaneous
  Country: UA (occurrence: UA)
  Receive Date: 20240124
  Receipt Date: 20240130
  Transmission Date: 20240410
  Serious: Yes (Life-Threatening, Hospitalization, Other)
  Sender: FDA-Public Use
  Company Number: UA-ABBVIE-5537159

PATIENT
  Age: 48 Year
  Sex: Male

DRUGS (2)
  1. VENETOCLAX [Suspect]
     Active Substance: VENETOCLAX
     Indication: Chronic lymphocytic leukaemia
     Dosage: 200 MILLIGRAM
     Route: 048
     Dates: start: 20230810, end: 20230917
  2. VENETOCLAX [Suspect]
     Active Substance: VENETOCLAX
     Indication: Chronic lymphocytic leukaemia
     Route: 048
     Dates: end: 202303

REACTIONS (7)
  - Cerebral haemorrhage [Recovered/Resolved]
  - Headache [Not Recovered/Not Resolved]
  - Oral herpes [Recovered/Resolved]
  - Tinnitus [Not Recovered/Not Resolved]
  - Thrombocytopenia [Unknown]
  - Epistaxis [Not Recovered/Not Resolved]
  - Hypoaesthesia [Recovered/Resolved]

NARRATIVE: CASE EVENT DATE: 20230817
